FAERS Safety Report 19701697 (Version 4)
Quarter: 2021Q3

REPORT INFORMATION
  Report Type: Report from Study
  Country: BE (occurrence: BE)
  Receive Date: 20210813
  Receipt Date: 20210924
  Transmission Date: 20211014
  Serious: Yes (Hospitalization)
  Sender: FDA-Public Use
  Company Number: BE-ROCHE-2855873

PATIENT
  Age: 74 Year
  Sex: Female
  Weight: 64.2 kg

DRUGS (13)
  1. BISOPROLOL [Concomitant]
     Active Substance: BISOPROLOL
     Indication: HYPERTENSION
     Route: 048
  2. CEFUROXIME. [Concomitant]
     Active Substance: CEFUROXIME
     Indication: URINARY TRACT INFECTION
     Route: 048
     Dates: start: 20210622, end: 20210627
  3. PARACETAMOL [Concomitant]
     Active Substance: ACETAMINOPHEN
     Indication: HEADACHE
     Route: 048
     Dates: start: 20210621
  4. PANTOPRAZOLE [Concomitant]
     Active Substance: PANTOPRAZOLE
     Indication: GASTROOESOPHAGEAL REFLUX DISEASE
     Route: 048
  5. ZOLPIDEM [Concomitant]
     Active Substance: ZOLPIDEM TARTRATE
     Indication: INSOMNIA
     Route: 048
  6. ACETYLSALICYLIC ACID [Concomitant]
     Active Substance: ASPIRIN
     Indication: TRANSIENT ISCHAEMIC ATTACK
     Route: 048
     Dates: start: 20210623
  7. BEFACT FORTE [Concomitant]
     Indication: POLYNEUROPATHY
     Dosage: 1 U
     Route: 048
  8. CLOBETASOL PROPIONATE. [Concomitant]
     Active Substance: CLOBETASOL PROPIONATE
     Dosage: 1 OTHER
     Route: 061
     Dates: start: 20210720, end: 20210730
  9. RO?7296682. [Suspect]
     Active Substance: RO-7296682
     Indication: NEOPLASM
     Dosage: ON 07/JUN/2021 FROM 3:53 PM TO 7:50 PM, SHE RECEIVED MOST RECENT DOSE OF RO7296682 (CD25 MAB) PRIOR
     Route: 042
     Dates: start: 20210607
  10. CLOBETASOL PROPIONATE. [Concomitant]
     Active Substance: CLOBETASOL PROPIONATE
     Indication: RASH
     Dosage: 1 OTHER
     Route: 061
     Dates: start: 20210715, end: 20210719
  11. ATEZOLIZUMAB. [Suspect]
     Active Substance: ATEZOLIZUMAB
     Indication: NEOPLASM
     Dosage: ON 07/JUN/2021 FROM 12:45 PM TO 1:49 PM, SHE RECEIVED MOST RECENT DOSE OF  ATEZOLIZUMAB PRIOR TO AE/
     Route: 042
     Dates: start: 20210607
  12. LYRICA [Concomitant]
     Active Substance: PREGABALIN
     Indication: PERIPHERAL SENSORY NEUROPATHY
     Route: 048
  13. ALLERGODIL [Concomitant]
     Active Substance: AZELASTINE
     Indication: LACRIMATION INCREASED
     Dosage: 1 UNKNOWN
     Route: 031
     Dates: start: 20210607

REACTIONS (2)
  - Confusional state [Recovered/Resolved]
  - Immune system disorder [Not Recovered/Not Resolved]

NARRATIVE: CASE EVENT DATE: 20210618
